FAERS Safety Report 6391712 (Version 4)
Quarter: 2017Q2

REPORT INFORMATION
  Report Type: Spontaneous
  Country: US (occurrence: US)
  Receive Date: 20070827
  Receipt Date: 20170420
  Transmission Date: 20170830
  Serious: Yes (Hospitalization, Other)
  Sender: FDA-Public Use
  Company Number: US-ROCHE-503358

PATIENT
  Age: 16 Year
  Sex: Male
  Weight: 97.5 kg

DRUGS (7)
  1. TAZORAC [Concomitant]
     Active Substance: TAZAROTENE
     Dosage: ^HS^
     Route: 065
  2. ACCUTANE [Suspect]
     Active Substance: ISOTRETINOIN
     Dosage: EVERY MORNING
     Route: 048
     Dates: start: 20021114, end: 20021121
  3. TRIAZ [Concomitant]
     Active Substance: BENZOYL PEROXIDE
     Dosage: EVERY MORNING
     Route: 065
  4. ACCUTANE [Suspect]
     Active Substance: ISOTRETINOIN
     Indication: ACNE
     Route: 048
     Dates: start: 20021121, end: 20030414
  5. MINOCIN [Concomitant]
     Active Substance: MINOCYCLINE HYDROCHLORIDE
     Dosage: DOSE REGIMEN REPORTED AS 75MG-100MG.
     Route: 048
  6. DYNACIN [Concomitant]
     Active Substance: MINOCYCLINE HYDROCHLORIDE
     Route: 065
  7. KLARON [Concomitant]
     Active Substance: SULFACETAMIDE SODIUM
     Dosage: APPLY TO FACE BID
     Route: 065

REACTIONS (12)
  - Inflammatory bowel disease [Unknown]
  - Colitis [Unknown]
  - Lip dry [Recovered/Resolved]
  - High density lipoprotein decreased [Unknown]
  - Acne [Unknown]
  - Blood triglycerides increased [Recovered/Resolved]
  - Enteritis [Unknown]
  - Crohn^s disease [Unknown]
  - Anaemia [Recovering/Resolving]
  - Dry skin [Recovered/Resolved]
  - Colitis ulcerative [Recovering/Resolving]
  - Emotional distress [Not Recovered/Not Resolved]

NARRATIVE: CASE EVENT DATE: 20021202
